FAERS Safety Report 26189203 (Version 1)
Quarter: 2025Q4

REPORT INFORMATION
  Report Type: Spontaneous
  Country: US (occurrence: US)
  Receive Date: 20251223
  Receipt Date: 20251223
  Transmission Date: 20260118
  Serious: Yes (Other)
  Sender: UNITED THERAPEUTICS
  Company Number: US-UNITED THERAPEUTICS-UNT-2025-042491

PATIENT
  Age: 77 Year
  Sex: Female

DRUGS (8)
  1. REMODULIN [Suspect]
     Active Substance: TREPROSTINIL
     Indication: Pulmonary arterial hypertension
     Dosage: UNK, CONTINUING
  2. REMODULIN [Suspect]
     Active Substance: TREPROSTINIL
     Indication: Scleroderma
  3. SOTATERCEPT [Suspect]
     Active Substance: SOTATERCEPT
     Indication: Pulmonary arterial hypertension
     Dosage: 0.3 MG/KG
  4. SOTATERCEPT [Suspect]
     Active Substance: SOTATERCEPT
     Indication: Scleroderma
     Dosage: 0.7 MG/KG (MAINTENANCE DOSE ADMINISTERED 10 TIMES)
  5. SILDENAFIL [Concomitant]
     Active Substance: SILDENAFIL
     Indication: Pulmonary arterial hypertension
     Dosage: UNK
  6. SILDENAFIL [Concomitant]
     Active Substance: SILDENAFIL
     Indication: Scleroderma
  7. MACITENTAN [Concomitant]
     Active Substance: MACITENTAN
     Indication: Pulmonary arterial hypertension
     Dosage: UNK
  8. MACITENTAN [Concomitant]
     Active Substance: MACITENTAN
     Indication: Scleroderma

REACTIONS (2)
  - Pericardial effusion [Unknown]
  - N-terminal prohormone brain natriuretic peptide increased [Recovering/Resolving]
